FAERS Safety Report 8837987 (Version 2)
Quarter: 2015Q2

REPORT INFORMATION
  Report Type: Report from Study
  Country: US (occurrence: US)
  Receive Date: 20121012
  Receipt Date: 20150622
  Transmission Date: 20150821
  Serious: Yes (Hospitalization)
  Sender: FDA-Public Use
  Company Number: US-ROCHE-1130411

PATIENT
  Age: 8 Year
  Sex: Male
  Weight: 22.9 kg

DRUGS (4)
  1. NUTROPIN AQ [Suspect]
     Active Substance: SOMATROPIN
     Indication: HYPOPITUITARISM
     Route: 058
  2. ALBUTEROL. [Concomitant]
     Active Substance: ALBUTEROL
  3. NUTROPIN AQ [Suspect]
     Active Substance: SOMATROPIN
     Indication: GROWTH HORMONE DEFICIENCY
     Route: 058
  4. NUTROPIN AQ [Suspect]
     Active Substance: SOMATROPIN
     Indication: DWARFISM

REACTIONS (2)
  - Bronchitis [Unknown]
  - Respiratory distress [Unknown]

NARRATIVE: CASE EVENT DATE: 199911
